FAERS Safety Report 4725695-4 (Version None)
Quarter: 2005Q3

REPORT INFORMATION
  Report Type: 
  Country: None (occurrence: None)
  Receive Date: 20050722
  Receipt Date: 20050722
  Transmission Date: 20060218
  Serious: Yes (Hospitalization)
  Sender: FDA-Public Use
  Company Number: None

PATIENT
  Age: 6 Month
  Sex: Male

DRUGS (1)
  1. CEFPODOXIME [Suspect]

REACTIONS (2)
  - CONDITION AGGRAVATED [None]
  - RASH ERYTHEMATOUS [None]
